FAERS Safety Report 6416286-8 (Version None)
Quarter: 2009Q4

REPORT INFORMATION
  Report Type: 
  Country: None (occurrence: None)
  Receive Date: 20091027
  Receipt Date: 20091019
  Transmission Date: 20100525
  Serious: Yes (Other)
  Sender: FDA-Public Use
  Company Number: US-ABBOTT-09P-163-0598556-00

PATIENT
  Sex: Male
  Weight: 90.9 kg

DRUGS (10)
  1. DEPAKOTE [Suspect]
     Indication: BIPOLAR DISORDER
  2. CHANTIX [Suspect]
     Indication: DRUG USE FOR UNKNOWN INDICATION
     Route: 048
     Dates: start: 20071201, end: 20080101
  3. KLONOPIN [Suspect]
     Indication: ANXIETY
     Dates: start: 20080101
  4. KLONOPIN [Suspect]
     Indication: BIPOLAR DISORDER
  5. LITHIUM [Concomitant]
     Indication: DRUG USE FOR UNKNOWN INDICATION
  6. PAROXETINE [Concomitant]
     Indication: DRUG USE FOR UNKNOWN INDICATION
  7. PRAVASTATIN [Concomitant]
     Indication: DRUG USE FOR UNKNOWN INDICATION
  8. FISH OIL [Concomitant]
     Indication: DRUG USE FOR UNKNOWN INDICATION
  9. RANITIDINE [Concomitant]
     Indication: DRUG USE FOR UNKNOWN INDICATION
  10. MULTI-VITAMINS [Concomitant]
     Indication: DRUG USE FOR UNKNOWN INDICATION

REACTIONS (12)
  - ANXIETY [None]
  - BLOOD CHOLESTEROL INCREASED [None]
  - DECREASED ACTIVITY [None]
  - DECREASED INTEREST [None]
  - DISTURBANCE IN ATTENTION [None]
  - LIBIDO DECREASED [None]
  - LOW DENSITY LIPOPROTEIN INCREASED [None]
  - MEMORY IMPAIRMENT [None]
  - PERSONALITY CHANGE [None]
  - SOMNOLENCE [None]
  - STRESS [None]
  - TARDIVE DYSKINESIA [None]
